FAERS Safety Report 14834544 (Version 2)
Quarter: 2019Q1

REPORT INFORMATION
  Report Type: Spontaneous
  Country: GB (occurrence: GB)
  Receive Date: 20180501
  Receipt Date: 20190313
  Transmission Date: 20190417
  Serious: Yes (Other)
  Sender: FDA-Public Use
  Company Number: GB-MYLANLABS-2018M1027999

PATIENT
  Age: 38 Year
  Sex: Female

DRUGS (1)
  1. LAMOTRIGINE. [Suspect]
     Active Substance: LAMOTRIGINE
     Indication: EPILEPSY
     Dosage: UNK

REACTIONS (6)
  - Hepatic function abnormal [Unknown]
  - Splenomegaly [Unknown]
  - Blood disorder [Unknown]
  - Pyrexia [Unknown]
  - Liver function test increased [Unknown]
  - Drug reaction with eosinophilia and systemic symptoms [Unknown]
